FAERS Safety Report 16317644 (Version 1)
Quarter: 2019Q2

REPORT INFORMATION
  Report Type: Spontaneous
  Country: IT (occurrence: IT)
  Receive Date: 20190516
  Receipt Date: 20190516
  Transmission Date: 20190711
  Serious: Yes (Other)
  Sender: FDA-Public Use
  Company Number: IT-SA-2019SA119182

PATIENT
  Age: 53 Year
  Sex: Male

DRUGS (1)
  1. CLEXANE [Suspect]
     Active Substance: ENOXAPARIN SODIUM
     Indication: PROPHYLAXIS
     Dosage: 12000 KIU, QD
     Route: 058

REACTIONS (3)
  - Pyrexia [Unknown]
  - Hypotension [Unknown]
  - Melaena [Unknown]

NARRATIVE: CASE EVENT DATE: 20190318
